FAERS Safety Report 18086431 (Version 3)
Quarter: 2020Q3

REPORT INFORMATION
  Report Type: Spontaneous
  Country: ES (occurrence: ES)
  Receive Date: 20200729
  Receipt Date: 20200921
  Transmission Date: 20201103
  Serious: Yes (Death, Hospitalization, Other)
  Sender: FDA-Public Use
  Company Number: ES-PUMA BIOTECHNOLOGY, LTD.-2020ES004077

PATIENT
  Sex: Female

DRUGS (4)
  1. NERLYNX [Suspect]
     Active Substance: NERATINIB
     Indication: OFF LABEL USE
     Dosage: 160 MG, QD (1/DAY), 4 TABLETS
     Dates: start: 20200715, end: 20200722
  2. NERLYNX [Suspect]
     Active Substance: NERATINIB
     Indication: LUNG NEOPLASM MALIGNANT
     Dosage: 240 MG, QD (1/DAY)
     Route: 048
     Dates: start: 20200528, end: 20200701
  3. NETUPITANT W/PALONOSETRON HYDROCHLORIDE [Concomitant]
     Active Substance: NETUPITANT\PALONOSETRON HYDROCHLORIDE
     Indication: NAUSEA
     Dosage: UNK UNK, UNKNOWN
     Route: 065
  4. DOMPERIDONE [Concomitant]
     Active Substance: DOMPERIDONE
     Indication: NAUSEA
     Dosage: UNK UNK, UNKNOWN
     Route: 065

REACTIONS (7)
  - Deep vein thrombosis [Not Recovered/Not Resolved]
  - Asthenia [Not Recovered/Not Resolved]
  - Off label use [Unknown]
  - Proteinuria [Recovering/Resolving]
  - Nausea [Recovered/Resolved]
  - Vomiting [Recovered/Resolved]
  - Product use in unapproved indication [Unknown]

NARRATIVE: CASE EVENT DATE: 20200528
